FAERS Safety Report 6051895-X (Version None)
Quarter: 2009Q1

REPORT INFORMATION
  Report Type: 
  Country: None (occurrence: None)
  Receive Date: 20090126
  Receipt Date: 20081208
  Transmission Date: 20090719
  Serious: Yes (Other)
  Sender: FDA-Public Use
  Company Number: FR-PFIZER INC-2008158721

PATIENT

DRUGS (4)
  1. NELFINAVIR MESILATE [Suspect]
  2. ZIDOVUDINE [Suspect]
  3. LAMIVUDINE [Suspect]
  4. DIDANOSINE [Suspect]

REACTIONS (2)
  - DRUG EXPOSURE DURING PREGNANCY [None]
  - TUMOUR FLARE [None]
